FAERS Safety Report 11723440 (Version 1)
Quarter: 2015Q4

REPORT INFORMATION
  Report Type: Spontaneous
  Country: FR (occurrence: FR)
  Receive Date: 20151111
  Receipt Date: 20151111
  Transmission Date: 20160304
  Serious: Yes (Hospitalization)
  Sender: FDA-Public Use
  Company Number: FR-EISAI MEDICAL RESEARCH-EC-2015-011781

PATIENT
  Age: 86 Year
  Sex: Female

DRUGS (7)
  1. MODOPAR [Suspect]
     Active Substance: BENSERAZIDE HYDROCHLORIDE\LEVODOPA
     Indication: COGNITIVE DISORDER
     Route: 048
     Dates: start: 20150929, end: 20151002
  2. MOTILIUM [Suspect]
     Active Substance: DOMPERIDONE
     Indication: NAUSEA
     Dosage: UNKNOWN
     Route: 048
     Dates: start: 20150929, end: 20151002
  3. MOTILIUM [Suspect]
     Active Substance: DOMPERIDONE
     Dosage: UNKNOWN
     Route: 048
     Dates: start: 20151006
  4. ARICEPT [Suspect]
     Active Substance: DONEPEZIL HYDROCHLORIDE
     Indication: COGNITIVE DISORDER
     Route: 048
     Dates: end: 20150928
  5. ARICEPT [Suspect]
     Active Substance: DONEPEZIL HYDROCHLORIDE
     Route: 048
     Dates: start: 20150929, end: 20151002
  6. LAMICTAL [Suspect]
     Active Substance: LAMOTRIGINE
     Indication: COGNITIVE DISORDER
     Route: 065
     Dates: start: 20150929, end: 20151006
  7. MODOPAR [Suspect]
     Active Substance: BENSERAZIDE HYDROCHLORIDE\LEVODOPA
     Dosage: UNKNOWN
     Route: 048
     Dates: start: 20151006

REACTIONS (3)
  - General physical health deterioration [Recovering/Resolving]
  - Somnolence [Recovered/Resolved]
  - Fall [Recovering/Resolving]

NARRATIVE: CASE EVENT DATE: 20151002
